FAERS Safety Report 6653590-2 (Version None)
Quarter: 2010Q1

REPORT INFORMATION
  Report Type: 
  Country: None (occurrence: None)
  Receive Date: 20100326
  Receipt Date: 20100324
  Transmission Date: 20100710
  Serious: Yes (Other)
  Sender: FDA-Public Use
  Company Number: FR-WYE-H14240110

PATIENT

DRUGS (1)
  1. TIGECYCLINE [Suspect]
     Dosage: 50 MG TWICE DAILY
     Route: 042

REACTIONS (2)
  - DRUG INEFFECTIVE [None]
  - DRUG RESISTANCE [None]
